FAERS Safety Report 22389480 (Version 1)
Quarter: 2023Q2

REPORT INFORMATION
  Report Type: Spontaneous
  Country: CN (occurrence: CN)
  Receive Date: 20230531
  Receipt Date: 20230531
  Transmission Date: 20230722
  Serious: Yes (Other)
  Sender: FDA-Public Use
  Company Number: CN-Merck Healthcare KGaA-9403849

PATIENT
  Age: 51 Year
  Sex: Male
  Weight: 52 kg

DRUGS (3)
  1. ERBITUX [Suspect]
     Active Substance: CETUXIMAB
     Indication: Squamous cell carcinoma of the parotid gland
     Dosage: 600 MG, WEEKLY (1/W)
     Route: 042
     Dates: start: 20230408
  2. CISPLATIN [Suspect]
     Active Substance: CISPLATIN
     Indication: Squamous cell carcinoma of the parotid gland
     Dosage: 120 MG, DAILY (D1-D2 Q21D)
     Route: 042
     Dates: start: 20230409, end: 20230410
  3. FLUOROURACIL [Suspect]
     Active Substance: FLUOROURACIL
     Indication: Squamous cell carcinoma of the parotid gland
     Dosage: 5.5 G, DAILY (D1-D4 Q21D PUMP INJECTION)
     Route: 042
     Dates: start: 20230409, end: 20230412

REACTIONS (1)
  - Myelosuppression [Recovering/Resolving]

NARRATIVE: CASE EVENT DATE: 20230504
